FAERS Safety Report 16925207 (Version 1)
Quarter: 2019Q4

REPORT INFORMATION
  Report Type: Spontaneous
  Country: IT (occurrence: IT)
  Receive Date: 20191016
  Receipt Date: 20191016
  Transmission Date: 20200122
  Serious: Yes (Other)
  Sender: FDA-Public Use
  Company Number: IT-SA-2019SA282632

PATIENT
  Age: 86 Year
  Sex: Male

DRUGS (1)
  1. STILNOX [Suspect]
     Active Substance: ZOLPIDEM TARTRATE
     Dosage: 100 MG, TOTAL
     Route: 048
     Dates: start: 20190918, end: 20190918

REACTIONS (5)
  - Drug abuse [Unknown]
  - Intentional product misuse [Unknown]
  - Intentional overdose [Unknown]
  - Sopor [Not Recovered/Not Resolved]
  - Somnolence [Not Recovered/Not Resolved]

NARRATIVE: CASE EVENT DATE: 20190918
